FAERS Safety Report 5390839-0 (Version None)
Quarter: 2007Q3

REPORT INFORMATION
  Report Type: 
  Country: None (occurrence: None)
  Receive Date: 20070713
  Receipt Date: 20070703
  Transmission Date: 20080115
  Serious: Yes (Life-Threatening, Hospitalization)
  Sender: FDA-Public Use
  Company Number: TCI2007A02154

PATIENT
  Age: 57 Year
  Sex: Male

DRUGS (6)
  1. ACTOS [Suspect]
     Indication: TYPE 2 DIABETES MELLITUS
     Dosage: SEE IMAGE
     Route: 048
     Dates: start: 20060903, end: 20061202
  2. ACTOS [Suspect]
     Indication: TYPE 2 DIABETES MELLITUS
     Dosage: SEE IMAGE
     Route: 048
     Dates: start: 20061203, end: 20070425
  3. NORVASC [Suspect]
     Indication: HYPERTENSION
     Dosage: 5 MG (5 MG, 1 IN 1 D)  PER ORAL
     Route: 048
     Dates: end: 20070425
  4. GLUCOBAY [Concomitant]
  5. AMARYL [Concomitant]
  6. LIPITOR [Concomitant]

REACTIONS (6)
  - ATRIAL FIBRILLATION [None]
  - ATRIAL FLUTTER [None]
  - ATRIAL TACHYCARDIA [None]
  - CARDIAC FAILURE CONGESTIVE [None]
  - OEDEMA [None]
  - VENTRICULAR TACHYCARDIA [None]
